FAERS Safety Report 14537168 (Version 1)
Quarter: 2018Q1

REPORT INFORMATION
  Report Type: Spontaneous
  Country: US (occurrence: US)
  Receive Date: 20180215
  Receipt Date: 20180215
  Transmission Date: 20180509
  Serious: No
  Sender: FDA-Public Use
  Company Number: US-MYLANLABS-2017M1073094

PATIENT
  Sex: Female

DRUGS (1)
  1. LIDOCAINE PATCH [Suspect]
     Active Substance: LIDOCAINE
     Indication: ARTHRALGIA
     Dosage: 1 DF, UNK
     Route: 062

REACTIONS (3)
  - Hypoaesthesia [Recovering/Resolving]
  - Off label use [Unknown]
  - Peripheral coldness [Recovering/Resolving]
